FAERS Safety Report 14755148 (Version 2)
Quarter: 2018Q3

REPORT INFORMATION
  Report Type: Spontaneous
  Country: US (occurrence: US)
  Receive Date: 20180413
  Receipt Date: 20180903
  Transmission Date: 20181010
  Serious: Yes (Death, Other)
  Sender: FDA-Public Use
  Company Number: US-BRISTOL-MYERS SQUIBB COMPANY-BMS-2018-034297

PATIENT
  Sex: Male

DRUGS (1)
  1. OPDIVO [Suspect]
     Active Substance: NIVOLUMAB
     Indication: CARCINOID TUMOUR
     Dosage: 240 MG, Q2WK
     Route: 065
     Dates: start: 20180326, end: 20180326

REACTIONS (2)
  - Death [Fatal]
  - Product use in unapproved indication [Unknown]
